FAERS Safety Report 14127673 (Version 1)
Quarter: 2017Q4

REPORT INFORMATION
  Report Type: Spontaneous
  Country: US (occurrence: US)
  Receive Date: 20171026
  Receipt Date: 20171026
  Transmission Date: 20180321
  Serious: Yes (Other)
  Sender: FDA-Public Use
  Company Number: US-ASTRAZENECA-2017SF09196

PATIENT
  Age: 773 Month
  Sex: Male

DRUGS (11)
  1. ZINC. [Concomitant]
     Active Substance: ZINC
  2. NORVASC [Concomitant]
     Active Substance: AMLODIPINE BESYLATE
  3. FLUOCINONIDE. [Concomitant]
     Active Substance: FLUOCINONIDE
  4. PRILOSEC [Suspect]
     Active Substance: OMEPRAZOLE MAGNESIUM
     Indication: GASTROOESOPHAGEAL REFLUX DISEASE
     Route: 048
  5. IMBRUVICA [Suspect]
     Active Substance: IBRUTINIB
     Indication: CHRONIC LYMPHOCYTIC LEUKAEMIA RECURRENT
     Route: 048
     Dates: start: 20141114
  6. SYNTHROID [Concomitant]
     Active Substance: LEVOTHYROXINE SODIUM
  7. IMBRUVICA [Suspect]
     Active Substance: IBRUTINIB
     Indication: CHRONIC LYMPHOCYTIC LEUKAEMIA RECURRENT
     Route: 048
     Dates: start: 20161201
  8. BYSTOLIC [Concomitant]
     Active Substance: NEBIVOLOL HYDROCHLORIDE
  9. PREDNISOLONE. [Concomitant]
     Active Substance: PREDNISOLONE
  10. PRILOSEC OTC [Suspect]
     Active Substance: OMEPRAZOLE MAGNESIUM
     Route: 048
  11. ZYRTEC [Concomitant]
     Active Substance: CETIRIZINE HYDROCHLORIDE

REACTIONS (14)
  - Gingival pain [Not Recovered/Not Resolved]
  - Gastrooesophageal reflux disease [Unknown]
  - Fungal skin infection [Unknown]
  - Musculoskeletal discomfort [Unknown]
  - Gingival erythema [Unknown]
  - Sinus disorder [Unknown]
  - Nasopharyngitis [Unknown]
  - Dry mouth [Unknown]
  - Platelet count decreased [Unknown]
  - Upper-airway cough syndrome [Unknown]
  - Eye irritation [Unknown]
  - Upper respiratory tract infection [Unknown]
  - Product use issue [Unknown]
  - Sinusitis [Not Recovered/Not Resolved]

NARRATIVE: CASE EVENT DATE: 201507
